FAERS Safety Report 4768963-2 (Version None)
Quarter: 2005Q3

REPORT INFORMATION
  Report Type: 
  Country: None (occurrence: None)
  Receive Date: 20050914
  Receipt Date: 20050826
  Transmission Date: 20060218
  Serious: Yes (Other)
  Sender: FDA-Public Use
  Company Number: RENA-11513

PATIENT
  Age: 49 Year
  Sex: Female

DRUGS (6)
  1. RENAGEL [Suspect]
     Indication: HYPERPHOSPHATAEMIA
     Dosage: 1.6 G DAILY PO
     Route: 048
  2. RENAGEL [Suspect]
     Indication: HYPERPHOSPHATAEMIA
     Dosage: 3.2 G DAILY PO
     Route: 048
  3. PEG-INTRON [Suspect]
     Indication: HEPATITIS C
     Dosage: 1.5 U/KG QW 1XW SC
     Route: 058
     Dates: start: 20010901, end: 20020901
  4. CALCIUM ACETATE [Concomitant]
  5. CORTICOSTEROIDS [Concomitant]
  6. ESTROGENS [Concomitant]

REACTIONS (8)
  - ARTHRALGIA [None]
  - BLOOD PHOSPHORUS DECREASED [None]
  - HYPERCALCAEMIA [None]
  - HYPERPARATHYROIDISM [None]
  - HYPERPHOSPHATAEMIA [None]
  - HYPOCALCAEMIA [None]
  - INFLUENZA LIKE ILLNESS [None]
  - RENAL TRANSPLANT [None]
